FAERS Safety Report 16624115 (Version 2)
Quarter: 2019Q3

REPORT INFORMATION
  Report Type: Spontaneous
  Country: JP (occurrence: JP)
  Receive Date: 20190724
  Receipt Date: 20190806
  Transmission Date: 20191004
  Serious: Yes (Hospitalization, Other)
  Sender: FDA-Public Use
  Company Number: JP-GLAXOSMITHKLINE-JP2019JPN118654

PATIENT
  Age: 63 Year
  Sex: Male
  Weight: 69 kg

DRUGS (4)
  1. EDOXABAN TOSILATE HYDRATE [Suspect]
     Active Substance: EDOXABAN TOSYLATE
     Indication: THROMBOSIS PROPHYLAXIS
     Dosage: 60 MG, 1D
     Route: 048
  2. PREDNISOLONE. [Suspect]
     Active Substance: PREDNISOLONE
     Indication: ASTHMA
     Dosage: 30 MG, 1D
     Route: 048
  3. FLUTIDE [Suspect]
     Active Substance: FLUTICASONE PROPIONATE
     Indication: ASTHMA
     Dosage: 250 ?G, BID
     Route: 055
  4. HEPARIN SODIUM. [Suspect]
     Active Substance: HEPARIN SODIUM
     Indication: THROMBOSIS PROPHYLAXIS
     Dosage: 16800 IU, 1D
     Route: 041

REACTIONS (8)
  - Cardiac failure acute [Recovered/Resolved]
  - Large intestinal ulcer [Recovered/Resolved]
  - Diverticulum intestinal [Unknown]
  - Amoebic colitis [Recovered/Resolved]
  - Haematochezia [Recovered/Resolved]
  - Dyspnoea [Unknown]
  - Atrial fibrillation [Recovered/Resolved]
  - Large intestine erosion [Unknown]
